FAERS Safety Report 24366059 (Version 1)
Quarter: 2024Q3

REPORT INFORMATION
  Report Type: Spontaneous
  Country: ES (occurrence: ES)
  Receive Date: 20240926
  Receipt Date: 20240926
  Transmission Date: 20241016
  Serious: Yes (Death, Hospitalization, Other)
  Sender: BLUEPRINT MEDICINES
  Company Number: ES-Blueprint Medicines Corporation-SP-ES-2024-001902

PATIENT
  Age: 80 Year
  Sex: Female

DRUGS (1)
  1. AVAPRITINIB [Suspect]
     Active Substance: AVAPRITINIB
     Indication: Product used for unknown indication
     Route: 065
     Dates: start: 202403, end: 202408

REACTIONS (4)
  - Disease progression [Fatal]
  - Diarrhoea [Unknown]
  - Weight decreased [Unknown]
  - Pleurisy [Unknown]

NARRATIVE: CASE EVENT DATE: 20240801
